FAERS Safety Report 18158561 (Version 1)
Quarter: 2020Q3

REPORT INFORMATION
  Report Type: Spontaneous
  Country: FR (occurrence: FR)
  Receive Date: 20200817
  Receipt Date: 20200817
  Transmission Date: 20201103
  Serious: Yes (Other)
  Sender: FDA-Public Use
  Company Number: FR-JNJFOC-20200810449

PATIENT
  Sex: Female

DRUGS (3)
  1. TREVICTA [Suspect]
     Active Substance: PALIPERIDONE PALMITATE
  2. TREVICTA [Suspect]
     Active Substance: PALIPERIDONE PALMITATE
     Route: 030
  3. TREVICTA [Suspect]
     Active Substance: PALIPERIDONE PALMITATE
     Indication: PRODUCT USED FOR UNKNOWN INDICATION
     Route: 030

REACTIONS (13)
  - Urinary tract pain [Unknown]
  - Decreased gait velocity [Unknown]
  - Hypotension [Unknown]
  - Hypertension [Unknown]
  - Phlebitis [Unknown]
  - Pancreatitis [Unknown]
  - Peripheral swelling [Unknown]
  - Thirst [Unknown]
  - Musculoskeletal stiffness [Unknown]
  - Varicose vein [Unknown]
  - Vulvovaginal pain [Unknown]
  - Pyrexia [Unknown]
  - Fatigue [Unknown]
